FAERS Safety Report 18479580 (Version 1)
Quarter: 2020Q4

REPORT INFORMATION
  Report Type: Spontaneous
  Country: US (occurrence: US)
  Receive Date: 20201109
  Receipt Date: 20201109
  Transmission Date: 20210114
  Serious: No
  Sender: FDA-Public Use
  Company Number: US-BAUSCH-BL-2020-031216

PATIENT
  Age: 78 Year
  Sex: Female

DRUGS (5)
  1. COSOPT [Concomitant]
     Active Substance: DORZOLAMIDE HYDROCHLORIDE\TIMOLOL MALEATE
     Indication: PRODUCT USED FOR UNKNOWN INDICATION
  2. LOTEMAX SM [Suspect]
     Active Substance: LOTEPREDNOL ETABONATE
     Indication: RETINAL OEDEMA
     Route: 047
     Dates: start: 20201015, end: 20201020
  3. PROLENSA [Suspect]
     Active Substance: BROMFENAC SODIUM
     Indication: POSTOPERATIVE CARE
     Route: 047
     Dates: start: 20201015
  4. PROLENSA [Suspect]
     Active Substance: BROMFENAC SODIUM
     Indication: RETINAL OEDEMA
  5. LOTEMAX SM [Suspect]
     Active Substance: LOTEPREDNOL ETABONATE
     Indication: POSTOPERATIVE CARE
     Route: 047
     Dates: start: 20201005, end: 202010

REACTIONS (3)
  - Pruritus [Recovered/Resolved]
  - Eye pain [Unknown]
  - Eye swelling [Unknown]

NARRATIVE: CASE EVENT DATE: 202010
